FAERS Safety Report 9466100 (Version 1)
Quarter: 2013Q3

REPORT INFORMATION
  Report Type: Spontaneous
  Country: US (occurrence: US)
  Receive Date: 20130820
  Receipt Date: 20130820
  Transmission Date: 20140515
  Serious: Yes (Other)
  Sender: FDA-Public Use
  Company Number: PHHY2013US087087

PATIENT
  Age: 31 Year
  Sex: Female

DRUGS (12)
  1. BASILIXIMAB [Suspect]
     Indication: RENAL TRANSPLANT
     Dosage: 20 MG, UNK
     Route: 042
  2. BASILIXIMAB [Suspect]
     Dosage: 20 MG, POD 4
     Route: 042
  3. CICLOSPORIN [Suspect]
     Indication: IMMUNOSUPPRESSION
     Dosage: UNK UKN, UNK
  4. TACROLIMUS [Suspect]
     Indication: IMMUNOSUPPRESSION
     Dosage: UNK UKN, BID
  5. METHYLPREDNISOLONE [Concomitant]
     Indication: RENAL TRANSPLANT
     Dosage: 500 MG, UNK
     Route: 042
  6. METHYLPREDNISOLONE [Concomitant]
     Dosage: 720 MG, BID
  7. CLINDAMYCIN [Concomitant]
     Indication: ANTIBIOTIC PROPHYLAXIS
     Dosage: UNK UKN, UNK
  8. MYCOPHENOLATE SODIUM [Concomitant]
     Indication: IMMUNOSUPPRESSION
     Dosage: UNK UKN, BID
  9. MYCOPHENOLATE SODIUM [Concomitant]
     Dosage: 720 MG, BID
  10. PLASMA [Concomitant]
     Dosage: ONCE/SINGLE FOR 3 DAYS
  11. BELATACEPT [Concomitant]
     Indication: IMMUNOSUPPRESSION
     Dosage: 837.5 MG, UNK
     Route: 042
  12. PREDNISONE [Concomitant]
     Indication: IMMUNOSUPPRESSION
     Dosage: 5 MG, QD, ONCE

REACTIONS (8)
  - Thrombotic microangiopathy [Unknown]
  - Arterial thrombosis [Unknown]
  - Swelling [Unknown]
  - Haemolytic uraemic syndrome [Unknown]
  - Thrombocytopenia [Recovered/Resolved]
  - Haemolytic anaemia [Recovered/Resolved]
  - Renal failure acute [Recovering/Resolving]
  - Complications of transplanted kidney [Recovering/Resolving]
